FAERS Safety Report 7096800-2 (Version None)
Quarter: 2010Q4

REPORT INFORMATION
  Report Type: 
  Country: None (occurrence: None)
  Receive Date: 20101111
  Receipt Date: 20101101
  Transmission Date: 20110411
  Serious: Yes (Hospitalization)
  Sender: FDA-Public Use
  Company Number: US-MYLANLABS-2010S1018841

PATIENT
  Age: 63 Year
  Sex: Male
  Weight: 122.93 kg

DRUGS (4)
  1. HYDROCHLOROTHIAZIDE [Suspect]
     Indication: HYPERTENSION
     Route: 048
     Dates: start: 20100118, end: 20100207
  2. HYDROCHLOROTHIAZIDE [Suspect]
     Route: 048
     Dates: start: 20100208, end: 20100302
  3. LISINOPRIL [Suspect]
     Indication: HYPERTENSION
     Route: 048
     Dates: start: 20091221, end: 20100302
  4. SIMVASTATIN [Concomitant]
     Dates: start: 20091201

REACTIONS (1)
  - MYOCARDIAL INFARCTION [None]
